FAERS Safety Report 16938119 (Version 3)
Quarter: 2019Q4

REPORT INFORMATION
  Report Type: Spontaneous
  Country: NL (occurrence: NL)
  Receive Date: 20191018
  Receipt Date: 20191118
  Transmission Date: 20200122
  Serious: Yes (Life-Threatening, Hospitalization)
  Sender: FDA-Public Use
  Company Number: NL-COLLEGIUM PHARMACEUTICAL, INC.-NL-2019COL001233

PATIENT
  Age: 64 Year
  Sex: Female

DRUGS (6)
  1. LORAZEPAM. [Suspect]
     Active Substance: LORAZEPAM
     Indication: PRODUCT USED FOR UNKNOWN INDICATION
     Dosage: 1 DF, QD
     Route: 048
     Dates: end: 20191001
  2. DULOXETINE. [Suspect]
     Active Substance: DULOXETINE
     Indication: POLYNEUROPATHY
     Dosage: 60 MG, BID
  3. TAPENTADOL EXTENDED RELEASE [Suspect]
     Active Substance: TAPENTADOL
     Indication: POLYNEUROPATHY
     Dosage: 150 MG, BID
     Route: 048
     Dates: start: 20171001, end: 20191001
  4. OXYCODONE [Suspect]
     Active Substance: OXYCODONE
     Indication: POLYNEUROPATHY
     Dosage: 10 MG, 5/DAY
     Route: 048
     Dates: start: 2019, end: 20191001
  5. OXAZEPAM. [Suspect]
     Active Substance: OXAZEPAM
     Indication: PRODUCT USED FOR UNKNOWN INDICATION
     Dosage: 10 MG, BID
     Route: 048
     Dates: end: 20191001
  6. TRAZODON [Suspect]
     Active Substance: TRAZODONE HYDROCHLORIDE
     Indication: PRODUCT USED FOR UNKNOWN INDICATION
     Dosage: 50 MG, BID
     Route: 048

REACTIONS (4)
  - Unresponsive to stimuli [Recovered/Resolved]
  - Drug interaction [Recovered/Resolved]
  - Cardio-respiratory arrest [Recovered/Resolved]
  - Respiratory depression [Recovered/Resolved]

NARRATIVE: CASE EVENT DATE: 20191001
